FAERS Safety Report 26073840 (Version 1)
Quarter: 2025Q4

REPORT INFORMATION
  Report Type: Spontaneous
  Country: EU (occurrence: EU)
  Receive Date: 20251121
  Receipt Date: 20251121
  Transmission Date: 20260118
  Serious: Yes (Other)
  Sender: AUROBINDO
  Company Number: EU-TopRidge-2025TR000213

PATIENT
  Age: 80 Year
  Sex: Male

DRUGS (9)
  1. ISOSORBIDE MONONITRATE [Suspect]
     Active Substance: ISOSORBIDE MONONITRATE
     Indication: Angina pectoris
     Dosage: UNK (60MG PER TABLET,0.5/2 TABLETS,QD )
  2. CARBASPIRIN CALCIUM [Suspect]
     Active Substance: CARBASPIRIN CALCIUM
     Indication: Product used for unknown indication
     Dosage: 100 MILLIGRAM, ONCE A DAY 1 BAG,
  3. ATORVASTATIN [Suspect]
     Active Substance: ATORVASTATIN
     Indication: Product used for unknown indication
     Dosage: 10 MILLIGRAM, TWO TIMES A DAY 2 TABLETS
  4. NITROGLYCERIN [Suspect]
     Active Substance: NITROGLYCERIN
     Indication: Product used for unknown indication
     Dosage: 0.4 MILLIGRAM, AS NECESSARY
  5. METOPROLOL SUCCINATE [Suspect]
     Active Substance: METOPROLOL SUCCINATE
     Indication: Product used for unknown indication
     Dosage: 50 MILLIGRAM, ONCE A DAY
  6. Fluticasone nasal drops [Concomitant]
     Indication: Product used for unknown indication
     Dosage: 1 GTT DROPS (1MG/ML,1 DROP PER NOSTRIL,BID)
  7. VERAPAMIL [Concomitant]
     Active Substance: VERAPAMIL HYDROCHLORIDE
     Indication: Product used for unknown indication
     Dosage: 120 MILLIGRAM AS NEEDED ONCE DAILY
  8. Omeprazole capsule extended release [Concomitant]
     Indication: Product used for unknown indication
     Dosage: 20 MILLIGRAM, ONCE A DAY 2TABLETS
  9. VERAPAMIL [Concomitant]
     Active Substance: VERAPAMIL HYDROCHLORIDE
     Indication: Product used for unknown indication
     Dosage: 120 MILLIGRAM, AS NECESSARY

REACTIONS (2)
  - Angina pectoris [Unknown]
  - Drug ineffective [Unknown]
